FAERS Safety Report 16696795 (Version 1)
Quarter: 2019Q3

REPORT INFORMATION
  Report Type: Spontaneous
  Country: US (occurrence: US)
  Receive Date: 20190813
  Receipt Date: 20190813
  Transmission Date: 20191004
  Serious: Yes (Hospitalization, Other)
  Sender: FDA-Public Use
  Company Number: US-BAYER-2019-149460

PATIENT
  Age: 63 Year
  Sex: Male

DRUGS (1)
  1. ACETYLSALICYLIC ACID (PAIN AND FEVER) [Suspect]
     Active Substance: ASPIRIN

REACTIONS (6)
  - Ecchymosis [None]
  - Haematuria [None]
  - Lip haematoma [None]
  - Intra-abdominal haematoma [None]
  - Haemorrhagic diathesis [None]
  - Increased tendency to bruise [None]
